FAERS Safety Report 18049647 (Version 1)
Quarter: 2020Q3

REPORT INFORMATION
  Report Type: Report from Study
  Country: US (occurrence: US)
  Receive Date: 20200721
  Receipt Date: 20200721
  Transmission Date: 20201103
  Serious: Yes (Other)
  Sender: FDA-Public Use
  Company Number: US-MYLANLABS-2020M1064709

PATIENT
  Age: 31 Year
  Sex: Male
  Weight: 122.47 kg

DRUGS (1)
  1. GLATIRAMER ACETATE INJECTION [Suspect]
     Active Substance: GLATIRAMER ACETATE
     Indication: MULTIPLE SCLEROSIS
     Dosage: 40 MILLIGRAM, Q3W
     Route: 058
     Dates: start: 20200712

REACTIONS (6)
  - Injection site pain [Recovering/Resolving]
  - Dizziness [Unknown]
  - Incorrect route of product administration [Unknown]
  - Hyperhidrosis [Recovering/Resolving]
  - Feeling hot [Unknown]
  - Loss of consciousness [Recovering/Resolving]

NARRATIVE: CASE EVENT DATE: 20200712
